FAERS Safety Report 8588570 (Version 2)
Quarter: 2012Q4

REPORT INFORMATION
  Report Type: 
  Country: US (occurrence: US)
  Receive Date: 20120531
  Receipt Date: 20121116
  Transmission Date: 20130627
  Serious: Yes (Hospitalization)
  Sender: FDA-Public Use
  Company Number: US-GLAXOSMITHKLINE-A0979373A

PATIENT
  Age: 2 Month
  Sex: Female
  Weight: 3.5 kg

DRUGS (2)
  1. FLOLAN [Suspect]
     Indication: PULMONARY ARTERIAL HYPERTENSION
     Dosage: 10.75NGKM Continuous
     Route: 042
     Dates: start: 20120509
  2. REVATIO [Concomitant]
     Indication: PULMONARY ARTERIAL HYPERTENSION
     Dosage: .65MG Three times per day
     Route: 048
     Dates: start: 20120326

REACTIONS (3)
  - Sepsis [Recovered/Resolved]
  - Device related infection [Recovered/Resolved]
  - Pyrexia [Recovered/Resolved]
